FAERS Safety Report 25841133 (Version 1)
Quarter: 2025Q3

REPORT INFORMATION
  Report Type: Spontaneous
  Country: US (occurrence: None)
  Receive Date: 20250923
  Receipt Date: 20250923
  Transmission Date: 20251020
  Serious: Yes (Other)
  Sender: FDA-CTU
  Company Number: None

PATIENT
  Age: 63 Year
  Sex: Male
  Weight: 101.25 kg

DRUGS (6)
  1. TROSPIUM CHLORIDE ER [Suspect]
     Active Substance: TROSPIUM CHLORIDE
     Indication: Hypertonic bladder
     Dosage: OTHER QUANTITY : 1 CAPSULE(S);?FREQUENCY : DAILY;?
     Route: 048
     Dates: start: 20250908, end: 20250910
  2. LISINOPRIL [Concomitant]
     Active Substance: LISINOPRIL
  3. Tamsulosin .8 mg [Concomitant]
  4. Fluoxetine Hydrochloride 80 Mg [Concomitant]
  5. Verapamil Hcl Er tabs 180 Mg (twice per day) [Concomitant]
  6. FINASTERIDE [Concomitant]
     Active Substance: FINASTERIDE

REACTIONS (2)
  - Urinary retention [None]
  - Dry mouth [None]

NARRATIVE: CASE EVENT DATE: 20250910
